FAERS Safety Report 6578458-1 (Version None)
Quarter: 2010Q1

REPORT INFORMATION
  Report Type: 
  Country: None (occurrence: None)
  Receive Date: 20100211
  Receipt Date: 20100201
  Transmission Date: 20100710
  Serious: Yes (Death, Other)
  Sender: FDA-Public Use
  Company Number: US-AMGEN-QUU386820

PATIENT
  Sex: Male
  Weight: 73.5 kg

DRUGS (7)
  1. NPLATE [Suspect]
     Indication: IDIOPATHIC THROMBOCYTOPENIC PURPURA
     Route: 058
     Dates: start: 20090213, end: 20090306
  2. UNSPECIFIED MEDICATION [Suspect]
     Dates: start: 20090306
  3. CORTICOSTEROIDS [Concomitant]
  4. DANAZOL [Concomitant]
     Dates: start: 20080618
  5. PREDNISONE TAB [Concomitant]
     Dates: start: 20080618
  6. INFLUENZA VACCINE [Concomitant]
     Dates: start: 20090306
  7. PNEUMOVAX 23 [Concomitant]
     Dates: start: 20090306

REACTIONS (2)
  - DEATH [None]
  - THERAPEUTIC RESPONSE DECREASED [None]
